FAERS Safety Report 17171151 (Version 1)
Quarter: 2019Q4

REPORT INFORMATION
  Report Type: Spontaneous
  Country: US (occurrence: US)
  Receive Date: 20191218
  Receipt Date: 20191218
  Transmission Date: 20200122
  Serious: No
  Sender: FDA-Public Use
  Company Number: US-SUPERNUS PHARMACEUTICALS, INC.-2019SUP00164

PATIENT
  Age: 55 Year
  Sex: Female

DRUGS (8)
  1. AJOVY [Suspect]
     Active Substance: FREMANEZUMAB-VFRM
     Dosage: UNK
  2. TOPAMAX [Suspect]
     Active Substance: TOPIRAMATE
     Dosage: UNK
  3. TROKENDI XR [Suspect]
     Active Substance: TOPIRAMATE
     Dosage: UNK, 1X/DAY
     Route: 048
  4. EMGALITY [Suspect]
     Active Substance: GALCANEZUMAB-GNLM
     Dosage: UNK
  5. UNSPECIFIED MUSCLE RELAXANTS [Suspect]
     Active Substance: UNSPECIFIED INGREDIENT
     Dosage: UNK
  6. AIMOVIG [Suspect]
     Active Substance: ERENUMAB-AOOE
     Dosage: UNK
  7. BOTOX [Suspect]
     Active Substance: ONABOTULINUMTOXINA
     Dosage: UNK
  8. UNSPECIFIED BETA BLOCKERS [Suspect]
     Active Substance: UNSPECIFIED INGREDIENT
     Dosage: UNK

REACTIONS (1)
  - Drug ineffective [Not Recovered/Not Resolved]
